FAERS Safety Report 5673201-2 (Version None)
Quarter: 2008Q2

REPORT INFORMATION
  Report Type: 
  Country: None (occurrence: None)
  Receive Date: 20080219
  Receipt Date: 20071217
  Transmission Date: 20081010
  Serious: No
  Sender: FDA-Public Use
  Company Number: TPA2007A02441

PATIENT
  Age: 65 Year
  Sex: Male
  Weight: 90.2658 kg

DRUGS (4)
  1. ROZEREM [Suspect]
     Indication: INSOMNIA
     Dosage: 8 MG, QHS, PER ORAL
     Route: 048
     Dates: start: 20071120, end: 20071123
  2. LISINOPRIL [Concomitant]
  3. ALLOPURINOL (ALLOPURINOL) (TABLETS) [Concomitant]
  4. LEVOTHYROXINE (LEVOTHYROXINE) (TABLETS) [Concomitant]

REACTIONS (1)
  - PRURITUS [None]
